FAERS Safety Report 17560548 (Version 2)
Quarter: 2020Q2

REPORT INFORMATION
  Report Type: Spontaneous
  Country: US (occurrence: US)
  Receive Date: 20200319
  Receipt Date: 20200505
  Transmission Date: 20200713
  Serious: No
  Sender: FDA-Public Use
  Company Number: US-ASTRAZENECA-2020SE31571

PATIENT
  Age: 414 Month
  Sex: Female
  Weight: 94.6 kg

DRUGS (2)
  1. BYDUREON BCISE [Suspect]
     Active Substance: EXENATIDE
     Indication: DIABETES MELLITUS
     Route: 058
     Dates: start: 20200207
  2. BYDUREON BCISE [Suspect]
     Active Substance: EXENATIDE
     Indication: DIABETES MELLITUS
     Route: 058
     Dates: start: 20191014, end: 20200207

REACTIONS (5)
  - Headache [Unknown]
  - Injection site erythema [Unknown]
  - Anxiety [Unknown]
  - Injection site nodule [Unknown]
  - Nausea [Unknown]

NARRATIVE: CASE EVENT DATE: 201910
